FAERS Safety Report 6973573-2 (Version None)
Quarter: 2010Q3

REPORT INFORMATION
  Report Type: 
  Country: None (occurrence: None)
  Receive Date: 20100909
  Receipt Date: 20100906
  Transmission Date: 20110219
  Serious: Yes (Death, Hospitalization)
  Sender: FDA-Public Use
  Company Number: IT-CELGENEUS-083-21880-10080139

PATIENT
  Sex: Female
  Weight: 50 kg

DRUGS (6)
  1. REVLIMID [Suspect]
     Indication: MULTIPLE MYELOMA
     Route: 048
     Dates: start: 20100322, end: 20100411
  2. REVLIMID [Suspect]
     Route: 048
     Dates: start: 20100426, end: 20100516
  3. REVLIMID [Suspect]
     Route: 048
     Dates: start: 20100604, end: 20100614
  4. DEXAMETHASONE [Suspect]
     Indication: MULTIPLE MYELOMA
     Route: 048
     Dates: start: 20100322, end: 20100419
  5. DEXAMETHASONE [Suspect]
     Route: 048
     Dates: start: 20100420, end: 20100517
  6. DEXAMETHASONE [Suspect]
     Route: 048
     Dates: start: 20100518, end: 20100614

REACTIONS (1)
  - INTESTINAL PERFORATION [None]
